FAERS Safety Report 8080205-1 (Version None)
Quarter: 2012Q1

REPORT INFORMATION
  Report Type: 
  Country: None (occurrence: None)
  Receive Date: 20120130
  Receipt Date: 20120119
  Transmission Date: 20120608
  Serious: Yes (Life-Threatening)
  Sender: FDA-Public Use
  Company Number: KZ-SANOFI-AVENTIS-2012SA004995

PATIENT
  Age: 67 Year
  Sex: Male
  Weight: 54.5 kg

DRUGS (3)
  1. AMARYL [Suspect]
     Dosage: HALF AT MORNING AND HALF AT NIGHT
     Route: 048
  2. GLUCOVANCE [Suspect]
     Dosage: ONE AT MORNING AND ONE AT NIGHT
     Route: 048
     Dates: start: 20100101
  3. AMARYL [Suspect]
     Dosage: HALF AT MORNING AND HALF AT NIGHT
     Route: 048
     Dates: start: 20100101

REACTIONS (1)
  - MYALGIA [None]
